FAERS Safety Report 15455177 (Version 4)
Quarter: 2019Q2

REPORT INFORMATION
  Report Type: Spontaneous
  Country: JP (occurrence: JP)
  Receive Date: 20181002
  Receipt Date: 20190621
  Transmission Date: 20190711
  Serious: Yes (Disabling, Other)
  Sender: FDA-Public Use
  Company Number: JP-VIIV HEALTHCARE LIMITED-JP2018JPN174320

PATIENT
  Age: 68 Year
  Sex: Male
  Weight: 52 kg

DRUGS (4)
  1. INSULIN HUMAN (GENETICAL RECOMBINATION) [Concomitant]
     Indication: TYPE 2 DIABETES MELLITUS
     Dosage: UNK
  2. CALCITRIOL. [Concomitant]
     Active Substance: CALCITRIOL
     Indication: OSTEOMALACIA
     Dosage: UNK
  3. HEPSERA [Suspect]
     Active Substance: ADEFOVIR DIPIVOXIL
     Indication: CHRONIC HEPATITIS B
     Dosage: 10 MG, QD, MORNING
     Route: 048
     Dates: start: 200506, end: 20160327
  4. ZEFIX [Suspect]
     Active Substance: LAMIVUDINE
     Indication: CHRONIC HEPATITIS B
     Dosage: 100 MG, QD
     Route: 048
     Dates: start: 2001

REACTIONS (13)
  - Pain in extremity [Unknown]
  - Fanconi syndrome acquired [Recovering/Resolving]
  - Renal tubular dysfunction [Unknown]
  - Nephropathy toxic [Not Recovered/Not Resolved]
  - Myalgia [Unknown]
  - Diabetic nephropathy [Unknown]
  - Gait disturbance [Unknown]
  - Foot fracture [Unknown]
  - Hepatocellular carcinoma [Unknown]
  - Osteomalacia [Recovering/Resolving]
  - Osteoporosis [Unknown]
  - Arthralgia [Unknown]
  - Bone pain [Recovering/Resolving]

NARRATIVE: CASE EVENT DATE: 2008
